FAERS Safety Report 8244522-4 (Version None)
Quarter: 2012Q1

REPORT INFORMATION
  Report Type: 
  Country: None (occurrence: None)
  Receive Date: 20120329
  Receipt Date: 20120320
  Transmission Date: 20120608
  Serious: Yes (Life-Threatening, Other)
  Sender: FDA-Public Use
  Company Number: KR-B.I. PHARMACEUTICALS,INC./RIDGEFIELD-2012-EU-01601GD

PATIENT
  Age: 43 Year
  Sex: Male

DRUGS (1)
  1. RANITIDINE [Suspect]

REACTIONS (4)
  - ANAPHYLACTIC REACTION [None]
  - HYPOTENSION [None]
  - CARDIAC ARREST [None]
  - DYSPNOEA [None]
